FAERS Safety Report 9543274 (Version 1)
Quarter: 2013Q3

REPORT INFORMATION
  Report Type: Spontaneous
  Country: US (occurrence: US)
  Receive Date: 20130923
  Receipt Date: 20130923
  Transmission Date: 20140515
  Serious: Yes (Other)
  Sender: FDA-Public Use
  Company Number: US-PFIZER INC-2013269119

PATIENT
  Age: 61 Year
  Sex: Male
  Weight: 118 kg

DRUGS (2)
  1. CADUET [Suspect]
     Indication: HYPERTENSION
     Dosage: 10/10 MG, 1X/DAY
     Route: 048
  2. ASPIRIN [Concomitant]
     Dosage: UNK, 1X/DAY

REACTIONS (4)
  - Tunnel vision [Not Recovered/Not Resolved]
  - Weight decreased [Not Recovered/Not Resolved]
  - Disturbance in attention [Not Recovered/Not Resolved]
  - Dizziness [Not Recovered/Not Resolved]
